FAERS Safety Report 25418538 (Version 1)
Quarter: 2025Q2

REPORT INFORMATION
  Report Type: Spontaneous
  Country: US (occurrence: None)
  Receive Date: 20250610
  Receipt Date: 20250610
  Transmission Date: 20250717
  Serious: No
  Sender: FDA-CTU
  Company Number: None

PATIENT
  Age: 54 Year
  Sex: Female

DRUGS (1)
  1. MIEBO [Suspect]
     Active Substance: PERFLUOROHEXYLOCTANE
     Indication: Dry eye
     Dosage: 1 DROP(S) 4 TIMES A DAY OPHTHALMIC
     Route: 047
     Dates: start: 20250520, end: 20250529

REACTIONS (4)
  - Eyelid skin dryness [None]
  - Erythema of eyelid [None]
  - Eyelids pruritus [None]
  - Therapy cessation [None]

NARRATIVE: CASE EVENT DATE: 20250528
